FAERS Safety Report 11324310 (Version 1)
Quarter: 2015Q3

REPORT INFORMATION
  Report Type: Spontaneous
  Country: US (occurrence: US)
  Receive Date: 20150730
  Receipt Date: 20150730
  Transmission Date: 20151125
  Serious: Yes (Other)
  Sender: FDA-Public Use
  Company Number: US-FRI-1000078459

PATIENT
  Sex: Female

DRUGS (3)
  1. VENTALIN [Concomitant]
  2. RIO [Concomitant]
  3. TUDORZA PRESSAIR [Suspect]
     Active Substance: ACLIDINIUM BROMIDE
     Dosage: 800MCG
     Route: 055

REACTIONS (6)
  - Dyspnoea [Unknown]
  - Malaise [Unknown]
  - Chronic obstructive pulmonary disease [Unknown]
  - Haemorrhagic stroke [Unknown]
  - Depression [Unknown]
  - Product quality issue [Unknown]
